FAERS Safety Report 4286402-5 (Version None)
Quarter: 2004Q1

REPORT INFORMATION
  Report Type: 
  Country: None (occurrence: None)
  Receive Date: 20040126
  Receipt Date: 20021223
  Transmission Date: 20041129
  Serious: No
  Sender: FDA-Public Use
  Company Number: 02P-163-0203778-00

PATIENT
  Age: 58 Year
  Sex: Male

DRUGS (2)
  1. TERAZOSIN HYDROCHLORIDE [Suspect]
     Dosage: 5 MG, ORAL
     Route: 048
     Dates: start: 20021007, end: 20021010
  2. VARDENAFIL 10 MG OR VARDENAFIL 20 MG OR PLACEBO (STUDY DRUG) [Suspect]
     Dates: start: 20021022, end: 20021022

REACTIONS (3)
  - DIZZINESS [None]
  - LETHARGY [None]
  - ORTHOSTATIC HYPOTENSION [None]
